FAERS Safety Report 5537509-3 (Version None)
Quarter: 2007Q4

REPORT INFORMATION
  Report Type: 
  Country: None (occurrence: None)
  Receive Date: 20071207
  Receipt Date: 20071204
  Transmission Date: 20080405
  Serious: Yes (Death, Life-Threatening, Hospitalization)
  Sender: FDA-Public Use
  Company Number: US-MERCK-0712USA01452

PATIENT
  Sex: Male

DRUGS (4)
  1. ZOLINZA [Suspect]
     Indication: B-CELL LYMPHOMA
     Route: 048
     Dates: start: 20071016
  2. ZOLINZA [Suspect]
     Indication: TESTIS CANCER
     Route: 048
     Dates: start: 20071016
  3. PREDNISONE [Concomitant]
     Route: 065
  4. [THERAPY UNSPECIFIED] [Concomitant]
     Route: 065

REACTIONS (2)
  - INTENTIONAL DRUG MISUSE [None]
  - PANCREATITIS [None]
